FAERS Safety Report 9422335 (Version 2)
Quarter: 2013Q3

REPORT INFORMATION
  Report Type: Spontaneous
  Country: JP (occurrence: JP)
  Receive Date: 20130726
  Receipt Date: 20130801
  Transmission Date: 20140515
  Serious: Yes (Other)
  Sender: FDA-Public Use
  Company Number: JP-COVIDIEN/TYCO HEALTHCARE/MALLINCKRODT-T201303797

PATIENT
  Sex: Female
  Weight: 57 kg

DRUGS (3)
  1. OPTIRAY [Suspect]
     Indication: COMPUTERISED TOMOGRAM
     Dosage: 84 ML, SINGLE
     Route: 042
     Dates: start: 20130719, end: 20130719
  2. HYDROCORTISONE SODIUM SUCCINATE [Concomitant]
     Indication: PREMEDICATION
     Dosage: 100 MG, QD
     Route: 042
     Dates: start: 20130719, end: 20130719
  3. SALINE                             /00075401/ [Concomitant]
     Indication: PREMEDICATION
     Dosage: 20 ML, QD
     Route: 042
     Dates: start: 20130719, end: 20130719

REACTIONS (1)
  - Anaphylactic shock [Recovered/Resolved]
